FAERS Safety Report 8548091-0 (Version None)
Quarter: 2012Q3

REPORT INFORMATION
  Report Type: 
  Country: None (occurrence: None)
  Receive Date: 20120730
  Receipt Date: 20120719
  Transmission Date: 20120928
  Serious: Yes (Other)
  Sender: FDA-Public Use
  Company Number: BR-AMGEN-BRASP2012046682

PATIENT
  Age: 71 Year
  Sex: Female
  Weight: 77 kg

DRUGS (6)
  1. ENBREL [Suspect]
     Indication: RHEUMATOID ARTHRITIS
     Dosage: 50 MG, ONCE WEEKLY
     Route: 058
     Dates: start: 20111207, end: 20120501
  2. HYDROCHLOROTHIAZIDE [Concomitant]
     Dosage: UNK
  3. KEFLEX                             /00145502/ [Concomitant]
     Dosage: UNK
  4. DICLOFENAC SODIUM [Concomitant]
     Dosage: UNK
  5. LOSARTAN POTASSIUM [Concomitant]
     Dosage: UNK
  6. XARELTO [Concomitant]
     Dosage: UNK

REACTIONS (3)
  - ACCIDENT [None]
  - HYPERTENSION [None]
  - ANKLE FRACTURE [None]
